FAERS Safety Report 7251291-3 (Version None)
Quarter: 2011Q1

REPORT INFORMATION
  Report Type: 
  Country: None (occurrence: None)
  Receive Date: 20110128
  Receipt Date: 20110121
  Transmission Date: 20110831
  Serious: Yes (Hospitalization)
  Sender: FDA-Public Use
  Company Number: JP-GENZYME-THYM-1001906

PATIENT
  Sex: Female
  Weight: 62 kg

DRUGS (50)
  1. FREEZE-DRIED SULFONATED HUMAN [Concomitant]
     Indication: INFECTION PROPHYLAXIS
     Dosage: UNK
     Route: 065
     Dates: start: 20090928, end: 20091214
  2. MELPHALAN [Concomitant]
     Indication: BONE MARROW CONDITIONING REGIMEN
     Dosage: UNK
     Route: 065
     Dates: start: 20090929, end: 20090929
  3. TACROLIMUS [Concomitant]
     Dosage: UNK
     Dates: start: 20091020, end: 20100202
  4. SENNOSIDE [Concomitant]
     Indication: CONSTIPATION
     Dosage: UNK
     Route: 065
     Dates: start: 20090924
  5. POLAPREZINC [Concomitant]
     Indication: PROPHYLAXIS AGAINST GASTROINTESTINAL ULCER
     Dosage: UNK
     Route: 065
     Dates: start: 20090925, end: 20091027
  6. FLUCONAZOLE [Concomitant]
     Indication: INFECTION PROPHYLAXIS
     Dosage: UNK
     Route: 065
     Dates: start: 20091127
  7. GLYCYRRHIZIN GLYCINE CYSTEINE COMBINED DRUG [Concomitant]
     Indication: PROPHYLAXIS
     Dosage: UNK
     Route: 065
     Dates: start: 20090924, end: 20091203
  8. FLUDARABINE PHOSPHATE [Concomitant]
     Indication: BONE MARROW CONDITIONING REGIMEN
     Dosage: UNK
     Route: 065
     Dates: start: 20090924, end: 20090928
  9. MICAFUNGIN SODIUM [Concomitant]
     Indication: INFECTION PROPHYLAXIS
     Dosage: UNK
     Route: 065
     Dates: start: 20090924, end: 20091126
  10. PIPERACILLIN SODIUM [Concomitant]
     Indication: INFECTION PROPHYLAXIS
     Dosage: UNK
     Route: 065
     Dates: start: 20090924, end: 20091007
  11. METHOTREXATE [Concomitant]
     Indication: PROPHYLAXIS AGAINST GRAFT VERSUS HOST DISEASE
     Dosage: UNK
     Route: 065
     Dates: start: 20091003, end: 20091008
  12. ACICLOVIR [Concomitant]
     Indication: INFECTION PROPHYLAXIS
     Dosage: UNK
     Route: 065
     Dates: start: 20091005, end: 20091027
  13. CEFTAZIDIME [Concomitant]
     Indication: INFECTION PROPHYLAXIS
     Dosage: UNK
     Route: 065
     Dates: start: 20091008, end: 20091021
  14. CLOSTRIDIUM BUTYRICUM [Concomitant]
     Indication: PROPHYLAXIS
     Dosage: UNK
     Route: 065
     Dates: start: 20090924
  15. ETHYL ICOSAPENTATE [Concomitant]
     Indication: PROPHYLAXIS
     Dosage: UNK
     Route: 065
     Dates: start: 20090924, end: 20100405
  16. PREDNISOLONE [Concomitant]
     Indication: PROPHYLAXIS AGAINST GRAFT VERSUS HOST DISEASE
     Dosage: UNK
     Route: 065
     Dates: start: 20091019
  17. CRYOTHERAPY [Concomitant]
     Indication: ANOGENITAL WARTS
     Dosage: UNK
     Route: 065
     Dates: start: 20091204, end: 20091204
  18. HYDROCORTISONE SODIUM SUCCINATE [Concomitant]
     Indication: PROPHYLAXIS OF NAUSEA AND VOMITING
     Dosage: UNK
     Route: 065
     Dates: start: 20090924, end: 20091002
  19. TACROLIMUS [Concomitant]
     Indication: PROPHYLAXIS AGAINST GRAFT VERSUS HOST DISEASE
     Dosage: UNK
     Route: 065
     Dates: start: 20091001, end: 20091020
  20. VANCOMYCIN HCL [Concomitant]
     Indication: INFECTION PROPHYLAXIS
     Dosage: UNK
     Route: 065
     Dates: start: 20090924, end: 20091022
  21. SODIUM PICOSULFATE [Concomitant]
     Indication: CONSTIPATION
     Dosage: UNK
     Route: 065
     Dates: start: 20090924
  22. DIFLUCORTOLONE VALERATE LIDOCAINE [Concomitant]
     Indication: PROPHYLAXIS
     Dosage: UNK
     Route: 065
     Dates: start: 20090924
  23. ALUGELIBYS MAGNESIADO [Concomitant]
     Indication: PROPHYLAXIS AGAINST GASTROINTESTINAL ULCER
     Dosage: UNK
     Route: 065
     Dates: start: 20091013, end: 20100128
  24. VALACICLOVIR [Concomitant]
     Indication: INFECTION PROPHYLAXIS
     Dosage: UNK
     Route: 065
     Dates: start: 20091026, end: 20100122
  25. POLYETHYLENE GLYCOL TREATED HUMAN NORMAL IMMUNOGLOBULIN [Concomitant]
     Dosage: UNK
     Route: 065
     Dates: start: 20100330
  26. GRANISETRON HYDROCHLORIDE [Concomitant]
     Dosage: UNK
     Route: 065
     Dates: start: 20100311, end: 20100311
  27. FUROSEMIDE [Concomitant]
     Indication: OEDEMA
     Dosage: UNK
     Route: 065
     Dates: start: 20090927, end: 20091118
  28. FILGRASTIM [Concomitant]
     Indication: COLONY STIMULATING FACTOR THERAPY
     Dosage: UNK
     Route: 065
     Dates: start: 20091003, end: 20091017
  29. LOPERAMIDE HYDROCHLORIDE [Concomitant]
     Indication: DIARRHOEA
     Dosage: UNK
     Route: 065
     Dates: start: 20090927, end: 20091122
  30. DALTEPARIN SODIUM [Concomitant]
     Indication: ANTICOAGULANT THERAPY
     Dosage: UNK
     Route: 065
     Dates: start: 20090924, end: 20091119
  31. GLUTATHIONE [Concomitant]
     Indication: PROPHYLAXIS
     Dosage: UNK
     Route: 065
     Dates: start: 20090924, end: 20091203
  32. METHOTREXATE [Concomitant]
     Indication: CHONDROSARCOMA
     Dosage: UNK
     Route: 065
     Dates: start: 20100311, end: 20100311
  33. URSODEOXYCHOLIC ACID [Concomitant]
     Indication: PROPHYLAXIS
     Dosage: UNK
     Route: 065
     Dates: start: 20090924, end: 20100405
  34. SODIUM GUALENATE HYDRATE [Concomitant]
     Indication: PROPHYLAXIS
     Dosage: UNK
     Route: 065
     Dates: start: 20090924, end: 20091130
  35. THYMOGLOBULIN [Suspect]
     Indication: BONE MARROW CONDITIONING REGIMEN
     Dosage: 75 MG, QD
     Route: 042
     Dates: start: 20090930, end: 20091001
  36. POLYETHYLENE GLYCOL TREATED HUMAN NORMAL IMMUNOGLOBULIN [Concomitant]
     Indication: INFECTION PROPHYLAXIS
     Dosage: UNK
     Route: 065
     Dates: start: 20091221, end: 20100116
  37. FAMOTIDINE [Concomitant]
     Indication: HAEMORRHAGE PROPHYLAXIS
     Dosage: UNK
     Route: 065
     Dates: start: 20090924, end: 20091028
  38. HYDROXYZINE HYDROCHLORIDE [Concomitant]
     Indication: PREMEDICATION
     Dosage: UNK
     Route: 065
     Dates: start: 20090925, end: 20091204
  39. MULTI-VIT [Concomitant]
     Indication: COLONY STIMULATING FACTOR THERAPY
     Dosage: UNK
     Route: 065
     Dates: start: 20091003, end: 20091017
  40. MAGNESIUM OXIDE [Concomitant]
     Indication: CONSTIPATION
     Dosage: UNK
     Route: 065
     Dates: start: 20090924
  41. SODIUM ALGINATE [Concomitant]
     Indication: PROPHYLAXIS AGAINST GASTROINTESTINAL ULCER
     Dosage: UNK
     Route: 065
     Dates: start: 20090925, end: 20090925
  42. ZINC OXIDE [Concomitant]
     Indication: PROPHYLAXIS
     Dosage: UNK
     Route: 065
     Dates: start: 20091002, end: 20091019
  43. TOTAL BODY IRRADIATION [Concomitant]
     Indication: BONE MARROW CONDITIONING REGIMEN
     Dosage: UNK
     Route: 065
     Dates: start: 20090924, end: 20090924
  44. GRANISETRON HYDROCHLORIDE [Concomitant]
     Indication: PROPHYLAXIS OF NAUSEA AND VOMITING
     Dosage: UNK
     Route: 065
     Dates: start: 20090924, end: 20091012
  45. PREDNISOLONE SODIUM SUCCINATE INJ [Concomitant]
     Indication: PROPHYLAXIS AGAINST GRAFT VERSUS HOST DISEASE
     Dosage: UNK
     Route: 065
     Dates: start: 20091002, end: 20091202
  46. POLYMYXIN-B-SULFATE [Concomitant]
     Indication: INFECTION PROPHYLAXIS
     Dosage: UNK
     Route: 065
     Dates: start: 20090924, end: 20091105
  47. ALLOPURINOL [Concomitant]
     Indication: PROPHYLAXIS
     Dosage: UNK
     Route: 065
     Dates: start: 20090924, end: 20090924
  48. SULFAMETHOPRIM [Concomitant]
     Indication: INFECTION PROPHYLAXIS
     Dosage: UNK
     Route: 065
     Dates: start: 20091015
  49. METHYLPREDNISOLONE SODIUM SUCCINATE [Concomitant]
     Indication: PREMEDICATION
     Dosage: UNK
     Route: 065
     Dates: start: 20090930, end: 20091001
  50. HEPARIN [Concomitant]
     Indication: DRY SKIN PROPHYLAXIS
     Dosage: UNK
     Route: 065
     Dates: start: 20091006, end: 20091231

REACTIONS (18)
  - HERPES ZOSTER [None]
  - PRURITUS [None]
  - ANAEMIA [None]
  - PLATELET COUNT DECREASED [None]
  - HAEMORRHAGE [None]
  - PAIN [None]
  - DIARRHOEA [None]
  - INTERSTITIAL LUNG DISEASE [None]
  - BACK PAIN [None]
  - ACUTE GRAFT VERSUS HOST DISEASE IN SKIN [None]
  - ARTHRALGIA [None]
  - NAUSEA [None]
  - INSOMNIA [None]
  - OROPHARYNGEAL PAIN [None]
  - ABDOMINAL PAIN UPPER [None]
  - HYPERTENSION [None]
  - DEPRESSION [None]
  - GRAFT VERSUS HOST DISEASE [None]
